FAERS Safety Report 24060179 (Version 2)
Quarter: 2024Q3

REPORT INFORMATION
  Report Type: Spontaneous
  Country: US (occurrence: US)
  Receive Date: 20240708
  Receipt Date: 20240715
  Transmission Date: 20241017
  Serious: Yes (Hospitalization)
  Sender: MYLAN
  Company Number: US-MYLANLABS-2024M1061818

PATIENT
  Age: 33 Year
  Sex: Male

DRUGS (2)
  1. BUPRENORPHINE [Suspect]
     Active Substance: BUPRENORPHINE
     Indication: Drug use disorder
     Dosage: 300 MILLIGRAM (TWO INITIAL EXTENDED-RELEASE BUPRENORPHINE INJECTIONS)
     Route: 058
  2. BUPRENORPHINE [Suspect]
     Active Substance: BUPRENORPHINE
     Dosage: 100 MILLIGRAM, MONTHLY (DERMAL INJECTION OF EXTENDED-RELEASE) (DERMAL)
     Route: 065

REACTIONS (2)
  - Skin necrosis [Recovered/Resolved]
  - Incorrect route of product administration [Recovered/Resolved]
